FAERS Safety Report 7388638-3 (Version None)
Quarter: 2011Q2

REPORT INFORMATION
  Report Type: 
  Country: None (occurrence: None)
  Receive Date: 20110401
  Receipt Date: 20110325
  Transmission Date: 20111010
  Serious: Yes (Hospitalization, Other)
  Sender: FDA-Public Use
  Company Number: ZA-NOVOPROD-325676

PATIENT
  Age: 42 Year
  Sex: Male
  Weight: 87 kg

DRUGS (3)
  1. NOVOMIX 30 FLEXPEN [Suspect]
     Indication: TYPE 2 DIABETES MELLITUS
     Dosage: 32 IU, QD
     Route: 065
     Dates: start: 20100401, end: 20110324
  2. DIAMICRON [Concomitant]
     Dosage: 4/DAY, 120 MG
     Dates: start: 20100401
  3. GLUCOPHAGE [Concomitant]
     Dosage: 2 G, QD
     Dates: start: 20100401

REACTIONS (2)
  - HYPOGLYCAEMIA [None]
  - CHEST PAIN [None]
